FAERS Safety Report 7325002-7 (Version None)
Quarter: 2011Q1

REPORT INFORMATION
  Report Type: 
  Country: None (occurrence: None)
  Receive Date: 20110301
  Receipt Date: 20110221
  Transmission Date: 20110831
  Serious: Yes (Life-Threatening)
  Sender: FDA-Public Use
  Company Number: JP-AMGEN-JPNCT2011011384

PATIENT
  Age: 83 Year
  Sex: Male

DRUGS (2)
  1. PANITUMUMAB [Suspect]
     Indication: COLORECTAL CANCER
     Dosage: 6 MG/KG, Q2WK
     Dates: start: 20101208
  2. IRINOTECAN HCL [Suspect]
     Indication: COLORECTAL CANCER
     Dosage: UNK UNK, UNK
     Route: 041
     Dates: start: 20101208

REACTIONS (1)
  - INTERSTITIAL LUNG DISEASE [None]
